FAERS Safety Report 8280789-4 (Version None)
Quarter: 2012Q2

REPORT INFORMATION
  Report Type: 
  Country: None (occurrence: None)
  Receive Date: 20120412
  Receipt Date: 20120402
  Transmission Date: 20120825
  Serious: Yes (Other)
  Sender: FDA-Public Use
  Company Number: US-ABBOTT-12P-163-0920842-00

PATIENT
  Sex: Female
  Weight: 43.13 kg

DRUGS (11)
  1. HUMIRA [Suspect]
     Indication: RHEUMATOID ARTHRITIS
     Dates: start: 20061001, end: 20120201
  2. ASPIRIN [Concomitant]
     Indication: PROPHYLAXIS
  3. HUMIRA [Suspect]
     Indication: RHEUMATOID ARTHRITIS
     Dates: start: 20050101, end: 20061001
  4. ACTONEL [Concomitant]
     Indication: BONE DISORDER
  5. CETIRIZINE HCL [Concomitant]
     Indication: SEASONAL ALLERGY
  6. LIPITOR [Concomitant]
     Indication: BLOOD CHOLESTEROL INCREASED
  7. SPIRONOLACTONE [Concomitant]
     Indication: POLYURIA
  8. ASPIRIN [Concomitant]
     Indication: CARDIAC DISORDER
  9. EVISTA [Concomitant]
     Indication: OSTEOPOROSIS
  10. CALCIUM CARBONATE [Concomitant]
     Indication: MINERAL SUPPLEMENTATION
  11. CARVEDILOL [Concomitant]
     Indication: HYPERTENSION

REACTIONS (6)
  - DECUBITUS ULCER [None]
  - OSTEOMYELITIS [None]
  - BLISTER [None]
  - FOOT FRACTURE [None]
  - BLISTER INFECTED [None]
  - FALL [None]
